FAERS Safety Report 17843149 (Version 3)
Quarter: 2020Q3

REPORT INFORMATION
  Report Type: Spontaneous
  Country: SK (occurrence: SK)
  Receive Date: 20200530
  Receipt Date: 20200720
  Transmission Date: 20201103
  Serious: Yes (Death, Hospitalization, Other)
  Sender: FDA-Public Use
  Company Number: SK-ABBVIE-20K-260-3425142-00

PATIENT
  Age: 61 Year
  Sex: Male

DRUGS (6)
  1. KVENTIAX [Concomitant]
     Active Substance: QUETIAPINE FUMARATE
     Indication: PARKINSON^S DISEASE PSYCHOSIS
     Dosage: 0?0?1?LONG TIME AGO
     Route: 048
  2. LEVETIRACETAM. [Concomitant]
     Active Substance: LEVETIRACETAM
     Indication: EPILEPSY
     Dosage: 1?0?1??APR?2020
     Route: 048
  3. PRESTARIUM [Concomitant]
     Active Substance: PERINDOPRIL
     Indication: HYPERTENSION
     Dosage: 1?0?0?LONG TIME AGO
     Route: 048
  4. DEPAKINE [Concomitant]
     Active Substance: VALPROATE SODIUM
     Indication: EPILEPSY
     Route: 048
     Dates: start: 202004
  5. DUODOPA [Suspect]
     Active Substance: CARBIDOPA\LEVODOPA
     Indication: PARKINSON^S DISEASE
     Dosage: MORNING DOSE: 11.5 ML. CONTINUOUS DOSE: 6.3 ML/HOUR
     Route: 050
     Dates: start: 20180601
  6. LEPONEX [Concomitant]
     Active Substance: CLOZAPINE
     Indication: PARKINSON^S DISEASE PSYCHOSIS
     Dosage: 1/2?0?1/2?LONG TIME AGO
     Route: 048

REACTIONS (7)
  - Choking [Unknown]
  - Device dislocation [Recovered/Resolved]
  - Pneumonia aspiration [Unknown]
  - Dysphagia [Unknown]
  - General physical health deterioration [Unknown]
  - Epilepsy [Unknown]
  - Death [Fatal]

NARRATIVE: CASE EVENT DATE: 2020
